FAERS Safety Report 9509154 (Version 1)
Quarter: 2013Q3

REPORT INFORMATION
  Report Type: Spontaneous
  Country: US (occurrence: US)
  Receive Date: 20130909
  Receipt Date: 20130909
  Transmission Date: 20140515
  Serious: No
  Sender: FDA-Public Use
  Company Number: US-BRISTOL-MYERS SQUIBB COMPANY-17358052

PATIENT
  Age: 30 Year
  Sex: Female
  Weight: 82.08 kg

DRUGS (5)
  1. ABILIFY [Suspect]
     Indication: BORDERLINE PERSONALITY DISORDER
     Dates: start: 2011
  2. PAXIL [Suspect]
  3. CELEXA [Concomitant]
     Indication: MOOD SWINGS
  4. CELEXA [Concomitant]
     Indication: DEPRESSION
  5. XANAX [Concomitant]
     Indication: ANXIETY

REACTIONS (2)
  - Diplopia [Unknown]
  - Spinal disorder [Unknown]
